FAERS Safety Report 8519148-5 (Version None)
Quarter: 2012Q3

REPORT INFORMATION
  Report Type: 
  Country: None (occurrence: None)
  Receive Date: 20120709
  Receipt Date: 20120627
  Transmission Date: 20120928
  Serious: Yes (Other)
  Sender: FDA-Public Use
  Company Number: ADR-2012-00927

PATIENT
  Sex: Male

DRUGS (2)
  1. LIORESAL [Suspect]
     Indication: CEREBRAL PALSY
     Dosage: 99.92 MCG/DAY; SEE B5
  2. LIORESAL [Suspect]
     Indication: MUSCLE SPASTICITY
     Dosage: 99.92 MCG/DAY; SEE B5

REACTIONS (6)
  - BURNING SENSATION [None]
  - DEVICE DISLOCATION [None]
  - INCORRECT DOSE ADMINISTERED [None]
  - DEVICE BREAKAGE [None]
  - FEELING COLD [None]
  - DRUG EFFECT DECREASED [None]
